FAERS Safety Report 8808100 (Version 2)
Quarter: 2014Q3

REPORT INFORMATION
  Report Type: Report from Study
  Country: US (occurrence: US)
  Receive Date: 20120925
  Receipt Date: 20140905
  Transmission Date: 20150326
  Serious: Yes (Death, Other)
  Sender: FDA-Public Use
  Company Number: US-ROCHE-1122783

PATIENT
  Age: 48 Year
  Sex: Female
  Weight: 54 kg

DRUGS (2)
  1. AVASTIN [Suspect]
     Active Substance: BEVACIZUMAB
     Indication: BREAST CANCER FEMALE
     Route: 042
  2. HERCEPTIN [Suspect]
     Active Substance: TRASTUZUMAB
     Indication: BREAST CANCER FEMALE
     Route: 042

REACTIONS (4)
  - Metastases to bone [Unknown]
  - Disease progression [Unknown]
  - Death [Fatal]
  - Metastases to lung [Unknown]

NARRATIVE: CASE EVENT DATE: 20060411
